FAERS Safety Report 7430592-X (Version None)
Quarter: 2011Q2

REPORT INFORMATION
  Report Type: 
  Country: None (occurrence: None)
  Receive Date: 20110421
  Receipt Date: 20100910
  Transmission Date: 20111010
  Serious: No
  Sender: FDA-Public Use
  Company Number: US-ASTRAZENECA-2010SE42715

PATIENT
  Age: 26 Year
  Sex: Female

DRUGS (1)
  1. TOPROL-XL [Suspect]
     Route: 048
     Dates: start: 20100201

REACTIONS (3)
  - ARRHYTHMIA [None]
  - DRUG DOSE OMISSION [None]
  - BLOOD PRESSURE ABNORMAL [None]
